FAERS Safety Report 5705275-4 (Version None)
Quarter: 2008Q2

REPORT INFORMATION
  Report Type: 
  Country: None (occurrence: None)
  Receive Date: 20080411
  Receipt Date: 20080402
  Transmission Date: 20081010
  Serious: Yes (Other)
  Sender: FDA-Public Use
  Company Number: CHPA2008US05944

PATIENT
  Age: 65 Year
  Sex: Female

DRUGS (4)
  1. BENEFIBER W/ WHEAT DEXTRIN (NCH)(WHEAT DEXTRIN) POWDER [Suspect]
     Indication: NUTRITIONAL SUPPORT
     Dosage: 2 TSP, TID, ORAL
     Route: 048
     Dates: start: 20080310, end: 20080315
  2. BENEFIBER W/ WHEAT DEXTRIN (NCH)(WHEAT DEXTRIN) POWDER [Suspect]
     Indication: NUTRITIONAL SUPPORT
     Dosage: 2 TSP, TID, ORAL
     Route: 048
     Dates: start: 20080330, end: 20080330
  3. NORVASC [Concomitant]
  4. GLIPIZIDE [Concomitant]

REACTIONS (3)
  - HYPERTENSION [None]
  - MEDICATION RESIDUE [None]
  - RENAL PAIN [None]
